FAERS Safety Report 20945857 (Version 3)
Quarter: 2023Q2

REPORT INFORMATION
  Report Type: Report from Study
  Country: DE (occurrence: DE)
  Receive Date: 20220610
  Receipt Date: 20230406
  Transmission Date: 20230722
  Serious: Yes (Other)
  Sender: FDA-Public Use
  Company Number: DE-002147023-PHHY2019DE154558

PATIENT
  Age: 26 Year
  Sex: Male
  Weight: 85.2 kg

DRUGS (9)
  1. IBUPROFEN [Suspect]
     Active Substance: IBUPROFEN
     Indication: Ankylosing spondylitis
     Dosage: 800 MILLIGRAM
     Route: 065
     Dates: start: 20190626
  2. COSENTYX [Suspect]
     Active Substance: SECUKINUMAB
     Indication: Ankylosing spondylitis
     Dosage: 300 MILLIGRAM, MONTHLY, (300 MG, QMO)
     Route: 065
     Dates: start: 20210317, end: 20210516
  3. COSENTYX [Suspect]
     Active Substance: SECUKINUMAB
     Dosage: 150 MILLIGRAM, (150 MG, UNKNOWN)
     Route: 065
     Dates: start: 20161025, end: 20161121
  4. COSENTYX [Suspect]
     Active Substance: SECUKINUMAB
     Dosage: 150 MILLIGRAM, (150 MG, UNKNOWN)
     Route: 065
     Dates: start: 20161122, end: 20170122
  5. COSENTYX [Suspect]
     Active Substance: SECUKINUMAB
     Dosage: 150 MILLIGRAM, (150 MG, UNKNOWN)
     Route: 065
     Dates: start: 20170131, end: 20181129
  6. COSENTYX [Suspect]
     Active Substance: SECUKINUMAB
     Dosage: 150 MILLIGRAM, MONTHLY, (150 MG, QMO)
     Route: 065
     Dates: start: 20210517, end: 20211031
  7. COSENTYX [Suspect]
     Active Substance: SECUKINUMAB
     Dosage: 150 MILLIGRAM, MONTHLY, (150 MG, QMO)
     Route: 065
     Dates: start: 20181215, end: 20210316
  8. COSENTYX [Suspect]
     Active Substance: SECUKINUMAB
     Dosage: 150 MILLIGRAM, MONTHLY, (150 MG, QMO)
     Route: 065
     Dates: start: 20211114
  9. ETORICOXIB [Concomitant]
     Active Substance: ETORICOXIB
     Indication: Ankylosing spondylitis
     Dosage: 90 MILLIGRAM, (90 MG, UNKNOWN)
     Route: 065
     Dates: start: 20160923, end: 20190625

REACTIONS (7)
  - Ankylosing spondylitis [Recovered/Resolved]
  - Nasopharyngitis [Recovered/Resolved]
  - Fatigue [Recovered/Resolved]
  - Jaw cyst [Recovered/Resolved]
  - Panic attack [Recovered/Resolved]
  - Rash [Recovered/Resolved]
  - Diarrhoea [Recovered/Resolved]

NARRATIVE: CASE EVENT DATE: 20181026
